FAERS Safety Report 6640601-3 (Version None)
Quarter: 2010Q1

REPORT INFORMATION
  Report Type: 
  Country: None (occurrence: None)
  Receive Date: 20100318
  Receipt Date: 20100312
  Transmission Date: 20100710
  Serious: Yes (Death, Life-Threatening, Hospitalization)
  Sender: FDA-Public Use
  Company Number: TW-BRISTOL-MYERS SQUIBB COMPANY-14963821

PATIENT
  Age: 81 Year
  Sex: Male

DRUGS (4)
  1. ERBITUX [Suspect]
     Indication: COLORECTAL CANCER
     Route: 042
     Dates: start: 20090818, end: 20100115
  2. AZATHIOPRINE [Concomitant]
     Indication: RENAL TRANSPLANT
     Route: 048
  3. ACETAMINOPHEN [Concomitant]
     Indication: ABDOMINAL PAIN
     Route: 048
     Dates: start: 20091201
  4. PREDNISOLONE [Concomitant]
     Indication: RENAL TRANSPLANT
     Route: 048

REACTIONS (4)
  - GASTRIC HAEMORRHAGE [None]
  - PERITONITIS [None]
  - PYREXIA [None]
  - SEPSIS [None]
